FAERS Safety Report 4422639-X (Version None)
Quarter: 2004Q3

REPORT INFORMATION
  Report Type: 
  Country: None (occurrence: None)
  Receive Date: 20040713
  Receipt Date: 20030703
  Transmission Date: 20050211
  Serious: No
  Sender: FDA-Public Use
  Company Number: PHEH2003US05656

PATIENT
  Age: 70 Year
  Sex: Male

DRUGS (1)
  1. ELIDEL [Suspect]
     Indication: ECZEMA
     Dosage: BID, TOPICAL
     Route: 061
     Dates: start: 20020901

REACTIONS (6)
  - BLISTER [None]
  - BURNING SENSATION [None]
  - DRUG INEFFECTIVE [None]
  - INFECTION [None]
  - PAIN [None]
  - PRURITUS [None]
